FAERS Safety Report 24050404 (Version 2)
Quarter: 2024Q3

REPORT INFORMATION
  Report Type: Report from Study
  Country: GR (occurrence: GR)
  Receive Date: 20240704
  Receipt Date: 20240724
  Transmission Date: 20241017
  Serious: Yes (Other)
  Sender: JOHNSON AND JOHNSON
  Company Number: GR-JNJFOC-20240678793

PATIENT
  Age: 12 Year
  Sex: Female
  Weight: 55 kg

DRUGS (2)
  1. REMICADE [Suspect]
     Active Substance: INFLIXIMAB
     Indication: Crohn^s disease
     Route: 041
     Dates: start: 2024
  2. AZATHIOPRINE [Concomitant]
     Active Substance: AZATHIOPRINE
     Route: 065

REACTIONS (3)
  - Intestinal resection [Unknown]
  - Asthenia [Not Recovered/Not Resolved]
  - Incorrect dose administered [Unknown]

NARRATIVE: CASE EVENT DATE: 20240301
